FAERS Safety Report 6045326-3 (Version None)
Quarter: 2009Q1

REPORT INFORMATION
  Report Type: 
  Country: None (occurrence: None)
  Receive Date: 20090121
  Receipt Date: 20090114
  Transmission Date: 20090719
  Serious: Yes (Hospitalization)
  Sender: FDA-Public Use
  Company Number: PHEH2008US10725

PATIENT
  Age: 15 Year
  Sex: Male

DRUGS (1)
  1. FOCALIN XR [Suspect]

REACTIONS (2)
  - DIZZINESS [None]
  - HEAD INJURY [None]
